FAERS Safety Report 7152596-7 (Version None)
Quarter: 2010Q4

REPORT INFORMATION
  Report Type: 
  Country: None (occurrence: None)
  Receive Date: 20101213
  Receipt Date: 20101202
  Transmission Date: 20110411
  Serious: Yes (Other)
  Sender: FDA-Public Use
  Company Number: US-JNJFOC-20101201631

PATIENT
  Sex: Female
  Weight: 90.72 kg

DRUGS (3)
  1. REMICADE [Suspect]
     Indication: RHEUMATOID ARTHRITIS
     Route: 042
  2. PAIN MEDICATION [Concomitant]
     Indication: PAIN
  3. ANTI-NAUSEA MEDICATION [Concomitant]
     Indication: NAUSEA

REACTIONS (1)
  - CHOLELITHIASIS [None]
